FAERS Safety Report 9296920 (Version 2)
Quarter: 2013Q3

REPORT INFORMATION
  Report Type: Spontaneous
  Country: GB (occurrence: GB)
  Receive Date: 20130518
  Receipt Date: 20130702
  Transmission Date: 20140515
  Serious: Yes (Hospitalization, Other)
  Sender: FDA-Public Use
  Company Number: GB-ROCHE-1225370

PATIENT
  Sex: Female

DRUGS (2)
  1. HERCEPTIN [Suspect]
     Indication: PRODUCT USED FOR UNKNOWN INDICATION
     Dosage: CYCLE 6
     Route: 065
  2. DOCETAXEL [Concomitant]

REACTIONS (9)
  - Oedema peripheral [Unknown]
  - Swelling face [Unknown]
  - Cellulitis [Unknown]
  - Conjunctivitis [Unknown]
  - Facial pain [Unknown]
  - Eye pain [Unknown]
  - Dry skin [Unknown]
  - Vision blurred [Unknown]
  - Asthenia [Unknown]
